FAERS Safety Report 25594420 (Version 2)
Quarter: 2025Q3

REPORT INFORMATION
  Report Type: Spontaneous
  Country: US (occurrence: US)
  Receive Date: 20250723
  Receipt Date: 20250916
  Transmission Date: 20251020
  Serious: No
  Sender: SANOFI AVENTIS
  Company Number: US-SA-2025SA204821

PATIENT
  Age: 77 Year
  Sex: Male

DRUGS (1)
  1. DUPIXENT [Suspect]
     Active Substance: DUPILUMAB
     Indication: Chronic obstructive pulmonary disease
     Dosage: 300 MG, QOW
     Route: 058
     Dates: start: 20250619

REACTIONS (14)
  - Pyrexia [Unknown]
  - Pain [Unknown]
  - Chest discomfort [Unknown]
  - Dyspnoea [Unknown]
  - Blood glucose increased [Unknown]
  - Fatigue [Unknown]
  - Condition aggravated [Unknown]
  - Cellulitis [Unknown]
  - Injection site warmth [Unknown]
  - Arthropod bite [Unknown]
  - Back pain [Not Recovered/Not Resolved]
  - Injection site erythema [Unknown]
  - Arthralgia [Unknown]
  - Chronic obstructive pulmonary disease [Recovered/Resolved]

NARRATIVE: CASE EVENT DATE: 20250101
